FAERS Safety Report 5287947-1 (Version None)
Quarter: 2007Q2

REPORT INFORMATION
  Report Type: 
  Country: None (occurrence: None)
  Receive Date: 20070405
  Receipt Date: 20070329
  Transmission Date: 20071010
  Serious: Yes (Other)
  Sender: FDA-Public Use
  Company Number: TW-JNJFOC-20070307239

PATIENT
  Age: 23 Year
  Sex: Female

DRUGS (7)
  1. HALOPERIDOL [Suspect]
     Indication: DRUG USE FOR UNKNOWN INDICATION
  2. TRANSAMINE [Concomitant]
  3. DECADRON [Concomitant]
  4. VIT-K1 [Concomitant]
  5. GASTER [Concomitant]
  6. MANNITOL [Concomitant]
  7. DILANTIN [Concomitant]

REACTIONS (1)
  - INAPPROPRIATE ANTIDIURETIC HORMONE SECRETION [None]
